FAERS Safety Report 20088123 (Version 2)
Quarter: 2021Q4

REPORT INFORMATION
  Report Type: Report from Study
  Country: US (occurrence: US)
  Receive Date: 20211118
  Receipt Date: 20211129
  Transmission Date: 20220303
  Serious: Yes (Hospitalization, Other)
  Sender: FDA-Public Use
  Company Number: US-SEATTLE GENETICS-2021SGN05975

PATIENT
  Age: 51 Year
  Sex: Female

DRUGS (2)
  1. TUCATINIB [Suspect]
     Active Substance: TUCATINIB
     Indication: Breast cancer female
     Dosage: UNK
  2. TUCATINIB [Suspect]
     Active Substance: TUCATINIB
     Dosage: UNK

REACTIONS (15)
  - Mental impairment [Unknown]
  - Sepsis [Unknown]
  - Pneumonia [Unknown]
  - Neuropathy peripheral [Unknown]
  - Amnesia [Unknown]
  - Infection [Unknown]
  - Full blood count decreased [Unknown]
  - Abdominal discomfort [Unknown]
  - Eye infection [Unknown]
  - Quality of life decreased [Unknown]
  - Muscular weakness [Unknown]
  - Dysstasia [Unknown]
  - Palmar-plantar erythrodysaesthesia syndrome [Unknown]
  - Rash [Unknown]
  - Nausea [Unknown]

NARRATIVE: CASE EVENT DATE: 20210928
